FAERS Safety Report 5740131-7 (Version None)
Quarter: 2008Q2

REPORT INFORMATION
  Report Type: 
  Country: None (occurrence: None)
  Receive Date: 20080516
  Receipt Date: 20080505
  Transmission Date: 20081010
  Serious: Yes (Other)
  Sender: FDA-Public Use
  Company Number: HQWYE007503OCT03

PATIENT
  Sex: Female

DRUGS (5)
  1. PREMPRO [Suspect]
     Dosage: UNSPECIFIED
     Route: 048
  2. MEDROXYPROGESTERONE ACETATE [Suspect]
     Dosage: UNKNOWN
     Route: 048
  3. CONJUGATED ESTROGENS [Suspect]
     Indication: HORMONE REPLACEMENT THERAPY
     Dosage: UNKNOWN
     Route: 048
  4. AYGESTIN [Suspect]
  5. PREMPHASE 14/14 [Suspect]

REACTIONS (2)
  - AMYOTROPHIC LATERAL SCLEROSIS [None]
  - BREAST CANCER [None]
